FAERS Safety Report 10745718 (Version 3)
Quarter: 2015Q1

REPORT INFORMATION
  Report Type: Spontaneous
  Country: US (occurrence: US)
  Receive Date: 20150128
  Receipt Date: 20150311
  Transmission Date: 20150721
  Serious: No
  Sender: FDA-Public Use
  Company Number: US-PFIZER INC-2013368679

PATIENT
  Age: 51 Year
  Sex: Male
  Weight: 132 kg

DRUGS (1)
  1. VIAGRA [Suspect]
     Active Substance: SILDENAFIL CITRATE
     Indication: ERECTILE DYSFUNCTION
     Dosage: 50 MG ONLY BEFORE SEX
     Route: 048
     Dates: start: 201205

REACTIONS (5)
  - Incorrect dose administered [Recovered/Resolved]
  - Drug interaction [Unknown]
  - Drug prescribing error [Recovered/Resolved]
  - Drug ineffective [Not Recovered/Not Resolved]
  - Intentional product misuse [Unknown]

NARRATIVE: CASE EVENT DATE: 201405
